FAERS Safety Report 6194427-8 (Version None)
Quarter: 2009Q2

REPORT INFORMATION
  Report Type: 
  Country: None (occurrence: None)
  Receive Date: 20090515
  Receipt Date: 20090430
  Transmission Date: 20091009
  Serious: Yes (Death)
  Sender: FDA-Public Use
  Company Number: 2009001319

PATIENT
  Age: 51 Year
  Sex: Female

DRUGS (1)
  1. ERLOTINIB      (ERLOTINIB) [Suspect]
     Indication: LUNG CARCINOMA CELL TYPE UNSPECIFIED STAGE IV
     Dosage: 150 MG ORAL
     Route: 048
     Dates: start: 20090114, end: 20090213

REACTIONS (1)
  - DEATH [None]
